FAERS Safety Report 9131498 (Version 1)
Quarter: 2013Q1

REPORT INFORMATION
  Report Type: Spontaneous
  Country: DE (occurrence: GB)
  Receive Date: 20130301
  Receipt Date: 20130301
  Transmission Date: 20140127
  Serious: Yes (Other)
  Sender: FDA-Public Use
  Company Number: GB-FRI-1000042978

PATIENT
  Age: 69 Year
  Sex: Female

DRUGS (4)
  1. MEMANTINE [Suspect]
     Indication: DEMENTIA
     Dosage: 10 MG
     Route: 048
     Dates: end: 20130208
  2. MEMANTINE [Suspect]
     Indication: DEMENTIA
     Dosage: 15 MG
     Route: 048
     Dates: start: 20130209
  3. MEMANTINE [Suspect]
     Route: 048
  4. TRIMETHOPRIM [Concomitant]

REACTIONS (7)
  - Convulsion [Recovered/Resolved]
  - Tremor [Recovered/Resolved]
  - Foaming at mouth [Recovered/Resolved]
  - Eye movement disorder [Recovered/Resolved]
  - Incontinence [Recovered/Resolved]
  - Loss of consciousness [Recovered/Resolved]
  - Postictal state [Recovered/Resolved]
